FAERS Safety Report 10704127 (Version 1)
Quarter: 2015Q1

REPORT INFORMATION
  Report Type: Spontaneous
  Country: US (occurrence: US)
  Receive Date: 20150112
  Receipt Date: 20150112
  Transmission Date: 20150721
  Serious: No
  Sender: FDA-Public Use
  Company Number: US-009507513-1501USA003034

PATIENT
  Sex: Male

DRUGS (1)
  1. TINACTIN [Suspect]
     Active Substance: TOLNAFTATE
     Indication: TINEA PEDIS
     Dosage: UNK, BID
     Route: 061

REACTIONS (2)
  - Onychomadesis [Unknown]
  - Condition aggravated [Unknown]
